FAERS Safety Report 6706864-0 (Version None)
Quarter: 2010Q2

REPORT INFORMATION
  Report Type: 
  Country: None (occurrence: None)
  Receive Date: 20100503
  Receipt Date: 20100421
  Transmission Date: 20101027
  Serious: Yes (Hospitalization, Disabling)
  Sender: FDA-Public Use
  Company Number: US-ELI_LILLY_AND_COMPANY-US200911004698

PATIENT
  Sex: Male
  Weight: 112.79 kg

DRUGS (9)
  1. ZYPREXA [Suspect]
     Indication: BIPOLAR DISORDER
     Dosage: 2.5 MG, DAILY (1/D)
     Route: 048
     Dates: start: 20081015, end: 20091016
  2. ZYPREXA [Suspect]
     Dosage: 5 MG, DAILY (1/D)
     Route: 048
     Dates: start: 20081104, end: 20091105
  3. ZYPREXA [Suspect]
     Dosage: 1 D/F, UNK
     Dates: start: 20090107, end: 20100108
  4. ZYPREXA [Suspect]
     Dosage: 40 MG, DAILY (1/D)
  5. ZYPREXA [Suspect]
     Dosage: 5 MG, 2/D
     Route: 048
     Dates: start: 20071017, end: 20081017
  6. ARIPIPRAZOLE [Concomitant]
     Dosage: 1 MG, 4/D
     Route: 048
     Dates: start: 20080101
  7. QUETIAPINE [Concomitant]
     Dosage: UNK, UNK
     Dates: start: 20080101
  8. SERTRALINE HCL [Concomitant]
     Dosage: 100 MG, EACH EVENING
     Route: 048
     Dates: start: 20070101
  9. TRAZODONE HCL [Concomitant]
     Dosage: 100 MG, EACH EVENING
     Route: 048

REACTIONS (4)
  - DIABETES MELLITUS [None]
  - FEBRILE NEUTROPENIA [None]
  - METABOLIC DISORDER [None]
  - WEIGHT INCREASED [None]
